FAERS Safety Report 6951244-6 (Version None)
Quarter: 2010Q3

REPORT INFORMATION
  Report Type: 
  Country: None (occurrence: None)
  Receive Date: 20100828
  Receipt Date: 20100321
  Transmission Date: 20110219
  Serious: No
  Sender: FDA-Public Use
  Company Number: US-ABBOTT-10P-163-0633552-00

PATIENT
  Sex: Male
  Weight: 88.53 kg

DRUGS (2)
  1. NIASPAN [Suspect]
     Indication: BLOOD CHOLESTEROL INCREASED
     Dates: start: 20100303, end: 20100311
  2. NIASPAN [Suspect]
     Indication: BLOOD CHOLESTEROL DECREASED
     Dates: start: 20100313

REACTIONS (3)
  - ERYTHEMA [None]
  - FEELING HOT [None]
  - PRURITUS GENERALISED [None]
